FAERS Safety Report 10817921 (Version 3)
Quarter: 2015Q1

REPORT INFORMATION
  Report Type: Report from Study
  Country: KR (occurrence: KR)
  Receive Date: 20150218
  Receipt Date: 20150309
  Transmission Date: 20150721
  Serious: Yes (Hospitalization)
  Sender: FDA-Public Use
  Company Number: KR-AMGEN-KORCT2015013048

PATIENT
  Age: 76 Year
  Sex: Female
  Weight: 46.5 kg

DRUGS (13)
  1. MELPHALAN [Suspect]
     Active Substance: MELPHALAN
     Indication: PLASMA CELL MYELOMA
     Dosage: 8 MG, PER CHEMO REGIM
     Route: 048
     Dates: start: 20141027
  2. ULTRACET SEMI [Concomitant]
     Indication: POST HERPETIC NEURALGIA
     Dosage: 2 UNK, BID
     Route: 048
     Dates: start: 20150128, end: 20150210
  3. DEXTROSE + NAK [Concomitant]
     Indication: NUTRITIONAL SUPPLEMENTATION
     Dosage: 1000 ML, QD
     Route: 042
     Dates: start: 20150209, end: 20150210
  4. MYPOL [Concomitant]
     Indication: POST HERPETIC NEURALGIA
     Dosage: 4 UNK, BID
     Route: 048
     Dates: start: 20150122, end: 20150209
  5. ZANTAC [Concomitant]
     Active Substance: RANITIDINE HYDROCHLORIDE
     Indication: PROPHYLAXIS
     Dosage: 300 MG, BID
     Route: 048
     Dates: start: 20150125, end: 20150204
  6. GELMA [Concomitant]
     Indication: PROPHYLAXIS
     Dosage: 40 G, QID
     Route: 048
     Dates: start: 20150121, end: 20150204
  7. CARFILZOMIB [Suspect]
     Active Substance: CARFILZOMIB
     Indication: PLASMA CELL MYELOMA
     Dosage: 36 MG/M2, PER CHEMO REGIM
     Route: 042
     Dates: start: 20141027
  8. SEPTRIN [Concomitant]
     Active Substance: SULFAMETHOXAZOLE\TRIMETHOPRIM
     Indication: ANTIBIOTIC PROPHYLAXIS
     Dosage: 2 UNK, BID
     Route: 048
     Dates: start: 20150121, end: 20150203
  9. TAMIPOOL [Concomitant]
     Indication: NUTRITIONAL SUPPLEMENTATION
     Dosage: 1 OTHER, QD
     Route: 042
     Dates: start: 20150209, end: 20150210
  10. PREDNISONE. [Suspect]
     Active Substance: PREDNISONE
     Indication: PLASMA CELL MYELOMA
     Dosage: 80 MG, PER CHEMO REGIM
     Route: 048
     Dates: start: 20141027
  11. VACROVIR                           /00587301/ [Concomitant]
     Indication: ANTIBIOTIC PROPHYLAXIS
     Dosage: 500 MG, BID
     Route: 048
     Dates: start: 20141027
  12. AMITRIPTYLINE [Concomitant]
     Active Substance: AMITRIPTYLINE
     Indication: POST HERPETIC NEURALGIA
     Dosage: 30 MG, TID
     Route: 048
     Dates: start: 20141210
  13. FLUCONAZOLE. [Concomitant]
     Active Substance: FLUCONAZOLE
     Indication: ANTIBIOTIC PROPHYLAXIS
     Dosage: 100 MG, QD
     Route: 048
     Dates: start: 20150121, end: 20150203

REACTIONS (1)
  - Myoclonus [Recovered/Resolved]

NARRATIVE: CASE EVENT DATE: 20150210
